FAERS Safety Report 24647044 (Version 1)
Quarter: 2024Q4

REPORT INFORMATION
  Report Type: Spontaneous
  Country: TW (occurrence: TW)
  Receive Date: 20241121
  Receipt Date: 20241121
  Transmission Date: 20250115
  Serious: Yes (Hospitalization)
  Sender: MYLAN
  Company Number: TW-MYLANLABS-2024M1104369

PATIENT
  Age: 67 Year
  Sex: Male

DRUGS (10)
  1. PAROXETINE [Interacting]
     Active Substance: PAROXETINE
     Indication: Depressed mood
     Dosage: 10 MILLIGRAM
     Route: 065
  2. PAROXETINE [Interacting]
     Active Substance: PAROXETINE
     Dosage: 20 MILLIGRAM, QD (DOSE INCREASED)
     Route: 065
  3. RISPERIDONE [Interacting]
     Active Substance: RISPERIDONE
     Indication: Agitation
     Dosage: UNK
     Route: 065
  4. RISPERIDONE [Interacting]
     Active Substance: RISPERIDONE
     Indication: Jealous delusion
     Dosage: 2 MILLIGRAM, QD (GRADUALLY DOSE INCREASED TO 2MG DAILY)
     Route: 065
  5. RISPERIDONE [Interacting]
     Active Substance: RISPERIDONE
     Dosage: 1 MILLIGRAM, QD
     Route: 065
  6. QUETIAPINE [Interacting]
     Active Substance: QUETIAPINE
     Indication: Agitation
     Dosage: 75 MILLIGRAM, QD
     Route: 065
  7. QUETIAPINE [Interacting]
     Active Substance: QUETIAPINE
     Indication: Behaviour disorder
     Dosage: 175 MILLIGRAM, QD (DOSE INCREASED)
     Route: 065
  8. QUETIAPINE [Interacting]
     Active Substance: QUETIAPINE
     Dosage: 100 MILLIGRAM, QD
     Route: 065
  9. NALTREXONE [Concomitant]
     Active Substance: NALTREXONE
     Indication: Alcohol use disorder
     Dosage: 50 MILLIGRAM
     Route: 065
  10. LORAZEPAM [Concomitant]
     Active Substance: LORAZEPAM
     Indication: Prophylaxis against alcoholic withdrawal syndrome
     Dosage: 1 MILLIGRAM, QID
     Route: 065

REACTIONS (2)
  - Serotonin syndrome [Recovering/Resolving]
  - Drug interaction [Recovering/Resolving]
